FAERS Safety Report 6274791-1 (Version None)
Quarter: 2009Q3

REPORT INFORMATION
  Report Type: 
  Country: None (occurrence: None)
  Receive Date: 20090721
  Receipt Date: 20071109
  Transmission Date: 20100115
  Serious: Yes (Other)
  Sender: FDA-Public Use
  Company Number: US-ASTRAZENECA-2007UW03855

PATIENT
  Age: 594 Month
  Sex: Female
  Weight: 87.1 kg

DRUGS (11)
  1. SEROQUEL [Suspect]
     Indication: SLEEP DISORDER
     Dosage: 25 TO 200 MG, FLUCTUATING
     Route: 048
     Dates: start: 19991212
  2. SEROQUEL [Suspect]
     Route: 048
     Dates: start: 20010404, end: 20050404
  3. SEROQUEL [Suspect]
     Route: 048
     Dates: start: 20030605, end: 20040602
  4. ZYPREXA [Suspect]
     Dates: start: 20010101
  5. ZYPREXA [Suspect]
     Dates: start: 20030127
  6. RISPERDAL [Suspect]
     Dates: start: 20010101
  7. RISPERDAL [Suspect]
     Dates: start: 20030127
  8. CLONAZEPAM [Concomitant]
     Dates: start: 20040126
  9. EFFEXOR XR [Concomitant]
     Dosage: 75 TO 150 MG, FLUCTUATING
     Route: 048
     Dates: start: 19991008
  10. NEURONTIN [Concomitant]
     Dosage: 100 TO 600 MG, FLUCTUATING
     Dates: start: 19991212
  11. PREDNISONE TAB [Concomitant]
     Dates: start: 20040503

REACTIONS (2)
  - NEUROPATHY PERIPHERAL [None]
  - TYPE 2 DIABETES MELLITUS [None]
